FAERS Safety Report 21604724 (Version 1)
Quarter: 2022Q4

REPORT INFORMATION
  Report Type: Spontaneous
  Country: KR (occurrence: KR)
  Receive Date: 20221116
  Receipt Date: 20221116
  Transmission Date: 20230113
  Serious: Yes (Death, Other)
  Sender: FDA-Public Use
  Company Number: KR-ALLERGAN-2237731US

PATIENT
  Sex: Female

DRUGS (3)
  1. MILNACIPRAN [Suspect]
     Active Substance: MILNACIPRAN
     Indication: Depression
     Dosage: 50 MG
  2. BUPROPION [Suspect]
     Active Substance: BUPROPION
     Indication: Depression
     Dosage: 150 MG
  3. CLONAZEPAM [Suspect]
     Active Substance: CLONAZEPAM
     Indication: Depression
     Dosage: 0.5 MG

REACTIONS (10)
  - Pneumonia aspiration [Fatal]
  - Parkinson^s disease [Unknown]
  - Hallucination [Unknown]
  - Helicobacter infection [Unknown]
  - Condition aggravated [Unknown]
  - Cognitive disorder [Unknown]
  - Delusion [Unknown]
  - Anxiety [Unknown]
  - Abnormal behaviour [Unknown]
  - Sensory disturbance [Unknown]
